FAERS Safety Report 11959549 (Version 1)
Quarter: 2016Q1

REPORT INFORMATION
  Report Type: Spontaneous
  Country: DE (occurrence: DE)
  Receive Date: 20160126
  Receipt Date: 20160126
  Transmission Date: 20160526
  Serious: Yes (Other)
  Sender: FDA-Public Use
  Company Number: DE-ASTRAZENECA-2016SE07335

PATIENT
  Age: 45 Year
  Sex: Female

DRUGS (5)
  1. CATUMAXOMAB [Concomitant]
     Active Substance: CATUMAXOMAB
     Dates: start: 200803
  2. CARBOPLATIN/GEMCITABINE [Concomitant]
     Dates: start: 200907, end: 200911
  3. OLAPARIB [Suspect]
     Active Substance: OLAPARIB
     Route: 048
  4. OLAPARIB [Suspect]
     Active Substance: OLAPARIB
     Route: 048
     Dates: start: 201502
  5. CARBOPLATIN/PACLITAXEL [Concomitant]
     Active Substance: CARBOPLATIN\PACLITAXEL
     Dates: start: 200803, end: 200807

REACTIONS (2)
  - Ovarian cancer recurrent [Unknown]
  - Intentional product use issue [Unknown]

NARRATIVE: CASE EVENT DATE: 200802
